FAERS Safety Report 6538748-5 (Version None)
Quarter: 2010Q1

REPORT INFORMATION
  Report Type: 
  Country: None (occurrence: None)
  Receive Date: 20100115
  Receipt Date: 20100105
  Transmission Date: 20100710
  Serious: Yes (Hospitalization)
  Sender: FDA-Public Use
  Company Number: DE-RANBAXY-2010RR-30282

PATIENT
  Age: 77 Year
  Sex: Female

DRUGS (2)
  1. SIMVASTATIN [Suspect]
     Indication: HYPERLIPIDAEMIA
     Dosage: UNK
     Route: 048
     Dates: start: 20091101
  2. MADOPAR [Suspect]
     Indication: RESTLESS LEGS SYNDROME
     Dosage: UNK
     Route: 048
     Dates: start: 20090501

REACTIONS (2)
  - MONOPARESIS [None]
  - RHABDOMYOLYSIS [None]
